FAERS Safety Report 11072671 (Version 1)
Quarter: 2015Q2

REPORT INFORMATION
  Report Type: Spontaneous
  Country: IT (occurrence: IT)
  Receive Date: 20150428
  Receipt Date: 20150428
  Transmission Date: 20150821
  Serious: Yes (Hospitalization)
  Sender: FDA-Public Use
  Company Number: IT-TEVA-557297ACC

PATIENT
  Age: 65 Year
  Sex: Female

DRUGS (2)
  1. SEROQUEL - 25 MG COMPRESSE RIVESTITE CON FILM [Concomitant]
     Active Substance: QUETIAPINE FUMARATE
     Indication: PRODUCT USED FOR UNKNOWN INDICATION
  2. CAPECITABINE. [Suspect]
     Active Substance: CAPECITABINE
     Indication: COLON CANCER
     Dosage: 2500 MILLIGRAM DAILY; 2500 MG DAILY
     Route: 048
     Dates: start: 20150415, end: 20150417

REACTIONS (3)
  - Hyperhidrosis [Recovering/Resolving]
  - Hypotension [Recovering/Resolving]
  - Vomiting [Recovering/Resolving]

NARRATIVE: CASE EVENT DATE: 20150417
